FAERS Safety Report 12235295 (Version 1)
Quarter: 2016Q2

REPORT INFORMATION
  Report Type: Report from Study
  Country: JP (occurrence: JP)
  Receive Date: 20160404
  Receipt Date: 20160404
  Transmission Date: 20160815
  Serious: Yes (Hospitalization, Other)
  Sender: FDA-Public Use
  Company Number: JP-BRISTOL-MYERS SQUIBB COMPANY-BMS-2016-023492

PATIENT
  Age: 81 Year
  Sex: Female

DRUGS (4)
  1. IPILIMUMAB [Suspect]
     Active Substance: IPILIMUMAB
     Dosage: 140 MG, UNK
     Route: 041
     Dates: start: 20160225
  2. IPILIMUMAB [Suspect]
     Active Substance: IPILIMUMAB
     Dosage: 140 MG, UNK
     Route: 041
     Dates: start: 20160317
  3. IPILIMUMAB [Suspect]
     Active Substance: IPILIMUMAB
     Dosage: 140 MG, UNK
     Route: 041
     Dates: start: 20160107
  4. IPILIMUMAB [Suspect]
     Active Substance: IPILIMUMAB
     Indication: MALIGNANT MELANOMA
     Dosage: 140 MG, UNK
     Route: 041
     Dates: start: 20151215

REACTIONS (1)
  - Toxic skin eruption [Recovering/Resolving]

NARRATIVE: CASE EVENT DATE: 20160119
